FAERS Safety Report 15230165 (Version 1)
Quarter: 2018Q4

REPORT INFORMATION
  Report Type: Spontaneous
  Country: US (occurrence: US)
  Receive Date: 20180802
  Receipt Date: 20180802
  Transmission Date: 20190204
  Serious: Yes (Other)
  Sender: FDA-Public Use
  Company Number: US-ACCORD-066163

PATIENT
  Age: 55 Year
  Sex: Female

DRUGS (8)
  1. DEXAMETHASONE. [Concomitant]
     Active Substance: DEXAMETHASONE
     Dosage: STRENGTH: 4 MG/ML ?SHORT OVER 15 MINUTES FOR 1 DAY IN NS 50 ML (1) AT THE RATE OF 212 ML/HR
     Route: 042
  2. PALONOSETRON. [Concomitant]
     Active Substance: PALONOSETRON HYDROCHLORIDE
     Dosage: STRENGTH: 0.25 MG/5ML?SHORT OVER 15 MINUTES FOR 1 DAY IN NS 50 ML (1) AT THE RATE OF 212 ML/HR
     Route: 042
  3. PROCHLORPERAZINE. [Concomitant]
     Active Substance: PROCHLORPERAZINE
     Dosage: STRENGTH: 10 MG?1 TABLET ORAL Q 8 HOURS PRN
     Route: 048
  4. FOSAPREPITANT DIMEGLUMINE. [Concomitant]
     Active Substance: FOSAPREPITANT DIMEGLUMINE
     Dosage: STRENGTH: 30 MG/ML?SHORT OVER 20 MINUTES FOR 1 DAY IN NS 150 ML (2) AT THE RATE OF 465 ML/HR
     Route: 042
  5. DOXORUBICIN [Concomitant]
     Active Substance: DOXORUBICIN
     Dosage: (AT 50 MG/M2) INTRAVENOUS DAILY PUSH OVER 15 MINUTES FOR 1 DAY
     Route: 042
  6. DOCETAXEL ACCORD [Suspect]
     Active Substance: DOCETAXEL
     Indication: BREAST CANCER
     Dosage: DOSE: 75 MG/M2?STRENGTH: 10 MG/ML
     Route: 042
     Dates: start: 20140318, end: 20140611
  7. CYCLOPHOSPHAMIDE/CYCLOPHOSPHAMIDE MONOHYDRATE [Suspect]
     Active Substance: CYCLOPHOSPHAMIDE
     Indication: BREAST CANCER
     Dosage: STRENGTH: 20 MG/ML?DOSE: 500 MG/M2?OVER 30 MINUTES FOR 1 DAY IN NS 100 ML (4) AT RATE OF 306 ML/HR
     Route: 042
  8. NEULASTA [Concomitant]
     Active Substance: PEGFILGRASTIM
     Route: 058

REACTIONS (1)
  - Alopecia [Not Recovered/Not Resolved]

NARRATIVE: CASE EVENT DATE: 201412
